FAERS Safety Report 22233150 (Version 2)
Quarter: 2025Q4

REPORT INFORMATION
  Report Type: Spontaneous
  Country: AU (occurrence: AU)
  Receive Date: 20230420
  Receipt Date: 20251110
  Transmission Date: 20260118
  Serious: Yes (Other)
  Sender: SANOFI AVENTIS
  Company Number: None

PATIENT
  Age: 20 Year
  Sex: Female

DRUGS (9)
  1. VALPROATE SODIUM [Suspect]
     Active Substance: VALPROATE SODIUM
     Dosage: 100 MG, BID
  2. LAMOTRIGINE [Suspect]
     Active Substance: LAMOTRIGINE
     Dosage: 25 MG, BID
  3. LORAZEPAM [Suspect]
     Active Substance: LORAZEPAM
     Dosage: 2 MG, QD (PRN)
  4. CLONIDINE [Suspect]
     Active Substance: CLONIDINE
     Dosage: 200 UG, BID (50MCG IN THE MORNING, 150 MCG AT NIGHT)
  5. FEXOFENADINE HYDROCHLORIDE [Suspect]
     Active Substance: FEXOFENADINE HYDROCHLORIDE
     Dosage: 180 MG
  6. OMEPRAZOLE [Suspect]
     Active Substance: OMEPRAZOLE
     Dosage: 20 MG, HS
  7. OLANZAPINE [Suspect]
     Active Substance: OLANZAPINE
     Dosage: UNK, PRN (5 - 10 MG DAY)
  8. HALOPERIDOL [Suspect]
     Active Substance: HALOPERIDOL
     Dosage: 4 MG, BID
  9. BENZTROPINE [Suspect]
     Active Substance: BENZTROPINE
     Dosage: 1 MG, BID

REACTIONS (5)
  - Croup infectious [Unknown]
  - Constipation [Unknown]
  - Ear infection [Unknown]
  - Headache [Unknown]
  - Weight increased [Unknown]
